FAERS Safety Report 4465400-2 (Version None)
Quarter: 2004Q3

REPORT INFORMATION
  Report Type: 
  Country: None (occurrence: None)
  Receive Date: 20040930
  Receipt Date: 20040825
  Transmission Date: 20050211
  Serious: Yes (Hospitalization)
  Sender: FDA-Public Use
  Company Number: F01200402578

PATIENT
  Age: 65 Year
  Sex: Male

DRUGS (11)
  1. (OXALIPLATIN) - SOLUTION - 85 MG/M2 [Suspect]
     Indication: COLORECTAL CANCER METASTATIC
     Dosage: 165 MG, Q2W, INTRAVENOUS NOS
     Route: 042
     Dates: start: 20040811, end: 20040811
  2. FLUOROURACIL [Suspect]
     Dosage: 775 MG (400 MG/M2 IV BOLUS) FOLLOWED BY 1160 MG (600 MG/M2 IV CONTINUOUS INFUSION) Q2W, INTRAVENOUS
     Route: 042
     Dates: start: 20040811, end: 20040813
  3. LEUCOVORIN CALCIUM [Suspect]
     Dosage: 390 MG Q2W, INTRAVENOUS NOS
     Route: 042
     Dates: start: 20040811, end: 20040812
  4. (BEVACIZUMAB OR PLACEBO) - SOLUTION - 1 UNIT [Suspect]
     Dosage: 1 UNIT Q3W, INTRAVENOUS NOS
     Route: 042
     Dates: start: 20040811, end: 20040811
  5. THYROXINE (LEVOTHYROXINE) [Concomitant]
  6. SIMVASTATIN [Concomitant]
  7. ASPIRIN [Concomitant]
  8. CODEINE [Concomitant]
  9. PARACETAMOL [Concomitant]
  10. LACTULOSE [Concomitant]
  11. SENNA [Concomitant]

REACTIONS (1)
  - MYOCARDIAL INFARCTION [None]
